FAERS Safety Report 14579972 (Version 1)
Quarter: 2018Q1

REPORT INFORMATION
  Report Type: Spontaneous
  Country: IT (occurrence: IT)
  Receive Date: 20180228
  Receipt Date: 20180228
  Transmission Date: 20180509
  Serious: Yes (Hospitalization)
  Sender: FDA-Public Use
  Company Number: IT-CIPLA LTD.-2018IT06501

PATIENT

DRUGS (2)
  1. EPIRUBICIN [Suspect]
     Active Substance: EPIRUBICIN
     Indication: LIPOSARCOMA
     Dosage: 100 MG, UNK, CYCLICAL
     Route: 042
     Dates: start: 20171209, end: 20171210
  2. HOLOXAN [Concomitant]
     Active Substance: IFOSFAMIDE
     Indication: LIPOSARCOMA
     Dosage: 5400 MG, UNK
     Route: 042
     Dates: start: 20171209, end: 20171210

REACTIONS (3)
  - Bradycardia [Recovered/Resolved with Sequelae]
  - Hypertension [Recovered/Resolved with Sequelae]
  - Dyspnoea [Recovered/Resolved with Sequelae]

NARRATIVE: CASE EVENT DATE: 20171210
